FAERS Safety Report 7860409-0 (Version None)
Quarter: 2011Q4

REPORT INFORMATION
  Report Type: 
  Country: None (occurrence: None)
  Receive Date: 20111027
  Receipt Date: 20111019
  Transmission Date: 20120403
  Serious: Yes (Other)
  Sender: FDA-Public Use
  Company Number: PHEH2011US07509

PATIENT
  Sex: Female

DRUGS (3)
  1. ZORTEX [Concomitant]
  2. LEXAPRO [Concomitant]
  3. GILENYA [Suspect]
     Dosage: 0.5 MG, QD
     Route: 048
     Dates: start: 20110301

REACTIONS (4)
  - NEUTROPHIL COUNT DECREASED [None]
  - WHITE BLOOD CELL COUNT DECREASED [None]
  - DIARRHOEA HAEMORRHAGIC [None]
  - LYMPHOCYTE COUNT DECREASED [None]
